FAERS Safety Report 20048186 (Version 4)
Quarter: 2021Q4

REPORT INFORMATION
  Report Type: Report from Study
  Country: PE (occurrence: PE)
  Receive Date: 20211109
  Receipt Date: 20211208
  Transmission Date: 20220303
  Serious: Yes (Life-Threatening, Hospitalization, Disabling, Congenital Anomaly, Other)
  Sender: FDA-Public Use
  Company Number: PE-SA-2021SA369158

PATIENT
  Sex: Male

DRUGS (1)
  1. ALEMTUZUMAB [Suspect]
     Active Substance: ALEMTUZUMAB
     Indication: Multiple sclerosis
     Dosage: 60 MG,  TWICE
     Route: 042
     Dates: start: 20180123, end: 20180127

REACTIONS (11)
  - Cleft lip and palate [Recovering/Resolving]
  - Paternal exposure before pregnancy [Recovering/Resolving]
  - Dyspnoea [Recovering/Resolving]
  - Otospondylomegaepiphyseal dysplasia [Recovering/Resolving]
  - Mosaicism [Recovering/Resolving]
  - Limb reduction defect [Not Recovered/Not Resolved]
  - Dextrocardia [Not Recovered/Not Resolved]
  - Congenital eye disorder [Not Recovered/Not Resolved]
  - Uvula aplasia [Recovering/Resolving]
  - Skin discolouration [Recovering/Resolving]
  - Moebius II syndrome [Recovering/Resolving]

NARRATIVE: CASE EVENT DATE: 20211011
